FAERS Safety Report 9220339 (Version 2)
Quarter: 2013Q2

REPORT INFORMATION
  Report Type: Spontaneous
  Country: NL (occurrence: NL)
  Receive Date: 20130409
  Receipt Date: 20130418
  Transmission Date: 20140414
  Serious: Yes (Hospitalization)
  Sender: FDA-Public Use
  Company Number: NL-PFIZER INC-2013109232

PATIENT
  Age: 41 Year
  Sex: Male
  Weight: 109 kg

DRUGS (9)
  1. AMLODIPINE BESILATE [Suspect]
     Dosage: 10 MG, 1X/DAY
     Route: 048
     Dates: start: 20111124, end: 20111223
  2. PANTOPRAZOLE [Suspect]
     Dosage: 40 MG, 1X/DAY
     Route: 048
  3. METOPROLOL SUCCINATE [Suspect]
     Dosage: 50 MG, 1X/DAY
     Route: 048
  4. BUSCOPAN [Suspect]
     Dosage: 10 MG, 3X/DAY
     Route: 048
     Dates: start: 20091209, end: 20111221
  5. SEROQUEL [Suspect]
     Dosage: 25 MG, 1X/DAY
     Route: 048
     Dates: start: 20111124, end: 20111221
  6. NORTRILEN [Suspect]
     Dosage: 100 MG, 1X/DAY, (2 TABLETS IN THE MORNING.)
     Route: 048
  7. DOMPERIDONE [Suspect]
     Dosage: 10 MG, 3X/DAY
     Route: 048
     Dates: start: 20091209, end: 20111221
  8. OXAZEPAM [Concomitant]
     Dosage: 5 MG, 2X/DAY AS NEEDED
  9. PANADOL [Concomitant]
     Dosage: 1000 MG, 3X/DAY
     Route: 048
     Dates: start: 20111124, end: 20111221

REACTIONS (10)
  - Abdominal discomfort [Not Recovered/Not Resolved]
  - Haemorrhoids [Not Recovered/Not Resolved]
  - Haemorrhage [Not Recovered/Not Resolved]
  - Eating disorder [Not Recovered/Not Resolved]
  - Dyspnoea [Not Recovered/Not Resolved]
  - Abnormal faeces [Not Recovered/Not Resolved]
  - Bowel movement irregularity [Not Recovered/Not Resolved]
  - Overweight [Not Recovered/Not Resolved]
  - Constipation [Not Recovered/Not Resolved]
  - Fatigue [Not Recovered/Not Resolved]
